FAERS Safety Report 15380717 (Version 2)
Quarter: 2019Q3

REPORT INFORMATION
  Report Type: Spontaneous
  Country: US (occurrence: US)
  Receive Date: 20180913
  Receipt Date: 20190912
  Transmission Date: 20191004
  Serious: Yes (Other)
  Sender: FDA-Public Use
  Company Number: US-ASTELLAS-2018US026346

PATIENT
  Sex: Male

DRUGS (1)
  1. XTANDI [Suspect]
     Active Substance: ENZALUTAMIDE
     Indication: PROSTATE CANCER
     Route: 048
     Dates: start: 20180515

REACTIONS (8)
  - Circadian rhythm sleep disorder [Unknown]
  - Nail injury [Not Recovered/Not Resolved]
  - Temperature intolerance [Unknown]
  - Weight decreased [Unknown]
  - Somnolence [Unknown]
  - Renal impairment [Unknown]
  - Sluggishness [Unknown]
  - Asthenia [Unknown]
